FAERS Safety Report 10167177 (Version 1)
Quarter: 2014Q2

REPORT INFORMATION
  Report Type: Spontaneous
  Country: US (occurrence: CA)
  Receive Date: 20140512
  Receipt Date: 20140512
  Transmission Date: 20141212
  Serious: Yes (Death)
  Sender: FDA-Public Use
  Company Number: CA-FRI-1000067197

PATIENT
  Age: 79 Year
  Sex: Male

DRUGS (3)
  1. ROFLUMILAST [Suspect]
     Indication: CHRONIC OBSTRUCTIVE PULMONARY DISEASE
     Dosage: 500 MCG
     Route: 048
     Dates: start: 20130425, end: 201305
  2. ROFLUMILAST [Suspect]
     Dosage: 250 MCG
     Route: 048
     Dates: start: 201306
  3. ALLOPURINOL [Concomitant]

REACTIONS (6)
  - Death [Fatal]
  - Feeling abnormal [Unknown]
  - Off label use [Recovered/Resolved]
  - Nausea [Recovered/Resolved]
  - Decreased appetite [Recovered/Resolved]
  - Tremor [Unknown]
